FAERS Safety Report 5123469-6 (Version None)
Quarter: 2006Q4

REPORT INFORMATION
  Report Type: 
  Country: None (occurrence: None)
  Receive Date: 20061009
  Receipt Date: 20051027
  Transmission Date: 20070319
  Serious: Yes (Death, Other)
  Sender: FDA-Public Use
  Company Number: JP-GILEAD-2005-0008905

PATIENT
  Sex: Male

DRUGS (14)
  1. VIREAD [Suspect]
     Indication: HIV INFECTION
     Route: 048
     Dates: start: 20041111, end: 20050419
  2. VIREAD [Suspect]
     Route: 048
     Dates: start: 20040706, end: 20040722
  3. NORVIR [Suspect]
     Indication: HIV INFECTION
     Route: 048
     Dates: start: 20040706, end: 20040722
  4. REYATAZ [Suspect]
     Indication: HIV INFECTION
     Dates: start: 20040706, end: 20040722
  5. LAMIVUDINE [Concomitant]
     Indication: HIV INFECTION
     Dates: start: 20041111, end: 20050419
  6. LAMIVUDINE [Concomitant]
     Route: 048
     Dates: start: 20031127, end: 20031224
  7. BACTRIM [Concomitant]
     Indication: HIV INFECTION
     Dates: start: 20040225, end: 20050505
  8. FUNGIZONE [Concomitant]
     Dates: start: 20040305
  9. NEORAL [Concomitant]
     Dates: start: 20040507, end: 20050505
  10. ZIAGEN [Concomitant]
     Dates: start: 20041111, end: 20050419
  11. ZITHROMYCIN [Concomitant]
     Dates: start: 20041203, end: 20050413
  12. VALIXA [Concomitant]
     Dates: start: 20041222, end: 20050202
  13. ETHAMBUTOL HYDROCHLORIDE [Concomitant]
     Dates: start: 20041013, end: 20041202
  14. INTERFERON BETA [Concomitant]
     Dates: start: 20041119, end: 20050331

REACTIONS (10)
  - ASCITES [None]
  - BACTERIAL INFECTION [None]
  - BLOOD ALBUMIN DECREASED [None]
  - DISSEMINATED INTRAVASCULAR COAGULATION [None]
  - HEPATIC FAILURE [None]
  - HEPATIC FUNCTION ABNORMAL [None]
  - HYPOALBUMINAEMIA [None]
  - JAUNDICE [None]
  - MYCOBACTERIUM AVIUM COMPLEX INFECTION [None]
  - PLEURAL EFFUSION [None]
